FAERS Safety Report 9464919 (Version 1)
Quarter: 2013Q3

REPORT INFORMATION
  Report Type: Spontaneous
  Country: US (occurrence: US)
  Receive Date: 20130819
  Receipt Date: 20130819
  Transmission Date: 20140515
  Serious: Yes (Other)
  Sender: FDA-Public Use
  Company Number: US-BRISTOL-MYERS SQUIBB COMPANY-19200047

PATIENT
  Age: 60 Year
  Sex: Male

DRUGS (11)
  1. BYETTA PEN DISPOSABLE [Suspect]
     Dosage: FORMULATION-BYETTA 5MCG/0.02ML AND 10MCG /0.04ML
  2. METFORMIN HCL TABS 500MG [Suspect]
  3. ACTOS [Suspect]
  4. JANUVIA [Suspect]
  5. JANUMET [Suspect]
  6. GLYBURIDE [Suspect]
  7. NAPROXEN SODIUM [Concomitant]
  8. ORPHENADRINE [Concomitant]
  9. METOPROLOL [Concomitant]
  10. VIAGRA [Concomitant]
  11. ANDROGEL [Concomitant]

REACTIONS (1)
  - Pancreatic neuroendocrine tumour [Unknown]
